FAERS Safety Report 14145688 (Version 1)
Quarter: 2017Q4

REPORT INFORMATION
  Report Type: Spontaneous
  Country: US (occurrence: US)
  Receive Date: 20171030
  Receipt Date: 20171030
  Transmission Date: 20180321
  Serious: Yes (Other)
  Sender: FDA-Public Use
  Company Number: None

PATIENT

DRUGS (1)
  1. ANTIPHLAMINE PAIN RELIEVING [Suspect]
     Active Substance: FLURBIPROFEN
     Indication: BACK PAIN
     Dosage: ?          QUANTITY:5 PATCH(ES);?
     Route: 062
     Dates: start: 20170912, end: 20170914

REACTIONS (1)
  - Product label confusion [None]
